FAERS Safety Report 5831311-0 (Version None)
Quarter: 2008Q3

REPORT INFORMATION
  Report Type: 
  Country: None (occurrence: None)
  Receive Date: 20080801
  Receipt Date: 20080722
  Transmission Date: 20090109
  Serious: No
  Sender: FDA-Public Use
  Company Number: US-BOEHRINGER INGELHEIM GMBH, GERMANY-2008-BP-11532BP

PATIENT
  Age: 67 Year
  Sex: Female

DRUGS (4)
  1. SPIRIVA [Suspect]
     Indication: CHRONIC OBSTRUCTIVE PULMONARY DISEASE
     Route: 055
  2. FORADIL [Concomitant]
  3. ALBUTEROL [Concomitant]
  4. SYMBICORT [Concomitant]

REACTIONS (1)
  - VISION BLURRED [None]
